FAERS Safety Report 23962319 (Version 2)
Quarter: 2024Q2

REPORT INFORMATION
  Report Type: Spontaneous
  Country: US (occurrence: US)
  Receive Date: 20240611
  Receipt Date: 20240614
  Transmission Date: 20240716
  Serious: Yes (Other)
  Sender: FDA-Public Use
  Company Number: US-MLMSERVICE-20240529-PI081278-00167-1

PATIENT
  Age: 7 Month
  Sex: Male

DRUGS (2)
  1. GLYNASE [Suspect]
     Active Substance: GLYBURIDE
     Indication: Neonatal diabetes mellitus
     Dosage: DIVIDED TWICE DAILY
     Route: 048
  2. INSULIN NOS [Concomitant]
     Active Substance: INSULIN NOS
     Indication: Neonatal diabetes mellitus
     Dosage: UNK
     Route: 058

REACTIONS (2)
  - Hypoglycaemia [Recovered/Resolved]
  - Off label use [Unknown]
